FAERS Safety Report 23342850 (Version 1)
Quarter: 2023Q4

REPORT INFORMATION
  Report Type: Spontaneous
  Country: ES (occurrence: ES)
  Receive Date: 20231227
  Receipt Date: 20231227
  Transmission Date: 20240110
  Serious: Yes (Hospitalization, Other)
  Sender: FDA-Public Use
  Company Number: ES-BRISTOL-MYERS SQUIBB COMPANY-2023-185312

PATIENT
  Age: 36 Year
  Sex: Female

DRUGS (1)
  1. MAVACAMTEN [Suspect]
     Active Substance: MAVACAMTEN
     Indication: Angina pectoris
     Dosage: DOSE : 5 MG;     FREQ : UNAVAILABLE
     Dates: start: 202311, end: 202312

REACTIONS (4)
  - Headache [Unknown]
  - Urinary tract infection [Unknown]
  - Angioedema [Unknown]
  - Off label use [Unknown]

NARRATIVE: CASE EVENT DATE: 20231205
